FAERS Safety Report 22075306 (Version 2)
Quarter: 2023Q1

REPORT INFORMATION
  Report Type: Report from Study
  Country: CA (occurrence: CA)
  Receive Date: 20230308
  Receipt Date: 20230309
  Transmission Date: 20230418
  Serious: Yes (Other)
  Sender: FDA-Public Use
  Company Number: CA-002147023-NVSC2023CA047573

PATIENT
  Age: 56 Year
  Sex: Male

DRUGS (5)
  1. TERIFLUNOMIDE [Suspect]
     Active Substance: TERIFLUNOMIDE
     Indication: Secondary progressive multiple sclerosis
     Dosage: UNK
     Route: 065
     Dates: start: 201906, end: 202301
  2. PRAMIPEXOLE [Suspect]
     Active Substance: PRAMIPEXOLE
     Indication: Secondary progressive multiple sclerosis
     Dosage: 0.25 MG, TID
     Route: 065
  3. AUBAGIO [Concomitant]
     Active Substance: TERIFLUNOMIDE
     Indication: Product used for unknown indication
     Dosage: 14 MG, QOD
     Route: 065
     Dates: start: 20190916
  4. DALFAMPRIDINE [Concomitant]
     Active Substance: DALFAMPRIDINE
     Indication: Product used for unknown indication
     Route: 065
  5. VITAMIN D [Concomitant]
     Active Substance: VITAMIN D NOS
     Indication: Product used for unknown indication
     Route: 065

REACTIONS (20)
  - Expanded disability status scale score increased [Unknown]
  - Bell^s palsy [Unknown]
  - Upper motor neurone lesion [Unknown]
  - Multiple sclerosis [Unknown]
  - Relapsing-remitting multiple sclerosis [Unknown]
  - Muscular weakness [Unknown]
  - Paraesthesia [Unknown]
  - Dyspnoea [Recovering/Resolving]
  - Gait disturbance [Unknown]
  - Fall [Unknown]
  - Blood pressure increased [Unknown]
  - Muscle spasticity [Unknown]
  - Heart rate increased [Unknown]
  - Eosinophil count increased [Unknown]
  - Lymphocyte count decreased [Unknown]
  - Tremor [Unknown]
  - Oedema peripheral [Recovered/Resolved]
  - Hypoaesthesia [Unknown]
  - Product use in unapproved indication [Unknown]
  - Therapeutic response shortened [Unknown]

NARRATIVE: CASE EVENT DATE: 20190601
